FAERS Safety Report 7399678-2 (Version None)
Quarter: 2011Q2

REPORT INFORMATION
  Report Type: 
  Country: None (occurrence: None)
  Receive Date: 20110405
  Receipt Date: 20110405
  Transmission Date: 20111010
  Serious: Yes (Disabling, Other)
  Sender: FDA-Public Use
  Company Number: None

PATIENT
  Age: 56 Year
  Sex: Female
  Weight: 85.2762 kg

DRUGS (9)
  1. LEXAPRO [Concomitant]
  2. CARISOPRODOL [Concomitant]
  3. OMEPRAZOLE [Concomitant]
  4. BENICAR [Concomitant]
  5. METHYLPHENIDATE [Concomitant]
  6. NIZATIDINE [Concomitant]
  7. FEXOFENADINE HCL [Concomitant]
  8. LEVAQUIN [Suspect]
     Indication: SINUSITIS
     Dosage: 1 TABLET QD DAILY PO
     Route: 048
     Dates: start: 20110401, end: 20110410
  9. KLOR-CON [Concomitant]

REACTIONS (2)
  - CHEST PAIN [None]
  - FOREIGN BODY [None]
